FAERS Safety Report 23327980 (Version 1)
Quarter: 2023Q4

REPORT INFORMATION
  Report Type: Spontaneous
  Country: CZ (occurrence: CZ)
  Receive Date: 20231221
  Receipt Date: 20231221
  Transmission Date: 20240110
  Serious: Yes (Other)
  Sender: FDA-Public Use
  Company Number: CZ-009507513-2312CZE000716

PATIENT
  Sex: Male

DRUGS (7)
  1. PEMETREXED [Suspect]
     Active Substance: PEMETREXED
     Indication: Lung adenocarcinoma
     Dosage: UNK
     Route: 065
     Dates: start: 202207
  2. KEYTRUDA [Suspect]
     Active Substance: PEMBROLIZUMAB
     Indication: Lung adenocarcinoma
     Dosage: 200 MILLIGRAM, EVERY 3 WEEKS; 6 CYCLES OF THE COMBINED TREATMENT
     Route: 065
     Dates: start: 202207
  3. KEYTRUDA [Suspect]
     Active Substance: PEMBROLIZUMAB
     Dosage: 200 MILLIGRAM, EVERY 3 WEEKS; MONOTHERAPY; 20 CYCLES IN TOTAL
     Route: 065
     Dates: start: 2023
  4. CARBOPLATIN [Suspect]
     Active Substance: CARBOPLATIN
     Indication: Lung adenocarcinoma
     Dosage: UNK
     Route: 065
     Dates: start: 202207
  5. METOPROLOL [Concomitant]
     Active Substance: METOPROLOL
     Dosage: 12.5 MILLIGRAM, QD (12.5 MILLIGRAM, QAM, REPORTED AS 1/2-0-0)
     Route: 065
  6. ATORVASTATIN CALCIUM [Concomitant]
     Active Substance: ATORVASTATIN CALCIUM
     Dosage: 30 MILLIGRAM, QD (30 MILLIGRAM, QPM, REPORTED AS 0-0-1)
     Route: 065
  7. ASPIRIN [Concomitant]
     Active Substance: ASPIRIN
     Dosage: 1 DOSAGE FORM, QD (1X1; STRENGTH REPORTED AS 100 (UNITS NOT PROVIDED)
     Route: 065

REACTIONS (3)
  - Malignant neoplasm progression [Unknown]
  - Joint injury [Unknown]
  - Lung opacity [Unknown]

NARRATIVE: CASE EVENT DATE: 20221001
